FAERS Safety Report 22529739 (Version 1)
Quarter: 2023Q2

REPORT INFORMATION
  Report Type: Report from Study
  Country: EG (occurrence: EG)
  Receive Date: 20230607
  Receipt Date: 20230607
  Transmission Date: 20230721
  Serious: Yes (Other)
  Sender: FDA-Public Use
  Company Number: EG-002147023-NVSC2023EG127331

PATIENT
  Age: 31 Year
  Sex: Female

DRUGS (8)
  1. COSENTYX [Suspect]
     Active Substance: SECUKINUMAB
     Indication: Ankylosing spondylitis
     Dosage: 150 MG, QMO
     Route: 065
     Dates: start: 202205, end: 202211
  2. HYRIMOZ [Suspect]
     Active Substance: ADALIMUMAB-ADAZ
     Indication: Product used for unknown indication
     Dosage: UNK
     Route: 065
     Dates: start: 202303, end: 20230418
  3. METHOTREXATE [Concomitant]
     Active Substance: METHOTREXATE
     Indication: Ankylosing spondylitis
     Dosage: 1- 0.5 CM QW (PATIENT DID NOT CONFIRM WHETHER IT WAS SANDOZ DRUG)
     Route: 065
     Dates: start: 202107, end: 202206
  4. PLAQUENIL [Concomitant]
     Active Substance: HYDROXYCHLOROQUINE SULFATE
     Indication: Ankylosing spondylitis
     Dosage: 1 DOSAGE FORM, BID
     Route: 065
     Dates: start: 202110
  5. PLAQUENIL [Concomitant]
     Active Substance: HYDROXYCHLOROQUINE SULFATE
     Dosage: 1 DOSAGE FORM, QD
     Route: 065
     Dates: end: 202210
  6. VITAMIN B12 [Concomitant]
     Active Substance: CYANOCOBALAMIN
     Indication: Sciatica
     Dosage: 1 DOSAGE FORM, QD (STARTED 3 YEARS AGO)
     Route: 060
  7. CAL MAG [Concomitant]
     Indication: Ankylosing spondylitis
     Dosage: 1 DOSAGE FORM, QD
     Route: 065
     Dates: start: 201811
  8. FOLIC ACID [Concomitant]
     Active Substance: FOLIC ACID
     Indication: Ankylosing spondylitis
     Dosage: 2 DOSAGE FORM, QD (THE PATIENT STATED THAT SHE STOPPED FOLIC ACID THE DAY AFTER AND THE DAY BEFORE T
     Route: 065
     Dates: start: 202107

REACTIONS (8)
  - Pyrexia [Recovered/Resolved]
  - Nasopharyngitis [Recovered/Resolved]
  - Musculoskeletal stiffness [Recovering/Resolving]
  - Neck pain [Recovering/Resolving]
  - Sleep disorder [Recovering/Resolving]
  - Pain [Not Recovered/Not Resolved]
  - Red blood cell sedimentation rate increased [Not Recovered/Not Resolved]
  - Drug ineffective [Not Recovered/Not Resolved]

NARRATIVE: CASE EVENT DATE: 20220501
